FAERS Safety Report 15535944 (Version 1)
Quarter: 2018Q4

REPORT INFORMATION
  Report Type: Spontaneous
  Country: PT (occurrence: PT)
  Receive Date: 20181022
  Receipt Date: 20181022
  Transmission Date: 20190205
  Serious: Yes (Other)
  Sender: FDA-Public Use
  Company Number: PT-ACCORD-073590

PATIENT
  Sex: Female
  Weight: 60 kg

DRUGS (8)
  1. RANITIDINE. [Concomitant]
     Active Substance: RANITIDINE
     Indication: SYSTEMIC SCLERODERMA
     Route: 048
     Dates: start: 2012
  2. DOMPERIDONE [Concomitant]
     Active Substance: DOMPERIDONE
     Indication: SYSTEMIC SCLERODERMA
     Route: 048
     Dates: start: 2012
  3. TOCILIZUMAB. [Suspect]
     Active Substance: TOCILIZUMAB
     Indication: SYSTEMIC SCLERODERMA
     Route: 058
     Dates: start: 20171013, end: 20171208
  4. SILDENAFIL. [Concomitant]
     Active Substance: SILDENAFIL
     Indication: SYSTEMIC SCLERODERMA
     Route: 048
     Dates: start: 2015
  5. PERINDOPRIL/AMLODIPINE [Concomitant]
     Indication: HYPERTENSION
     Dosage: 5/10MG
     Route: 048
     Dates: start: 2011
  6. BOSENTAN. [Concomitant]
     Active Substance: BOSENTAN
     Indication: SYSTEMIC SCLERODERMA
     Route: 048
     Dates: start: 2011
  7. MYCOPHENOLIC ACID. [Suspect]
     Active Substance: MYCOPHENOLIC ACID
     Indication: SYSTEMIC SCLERODERMA
     Route: 048
     Dates: start: 20120211, end: 20171012
  8. PANTOPRAZOLE [Concomitant]
     Active Substance: PANTOPRAZOLE
     Indication: SYSTEMIC SCLERODERMA
     Route: 048
     Dates: start: 2012

REACTIONS (5)
  - Off label use [Unknown]
  - Arthritis [Unknown]
  - Intentional product use issue [Unknown]
  - Hypoxia [Unknown]
  - Lung neoplasm [Unknown]

NARRATIVE: CASE EVENT DATE: 20171215
